FAERS Safety Report 12640525 (Version 4)
Quarter: 2016Q3

REPORT INFORMATION
  Report Type: Other
  Country: GB (occurrence: GB)
  Receive Date: 20160810
  Receipt Date: 20160914
  Transmission Date: 20161109
  Serious: Yes (Other)
  Sender: FDA-Public Use
  Company Number: GB-PERRIGO-16GB018843

PATIENT

DRUGS (11)
  1. LORATADINE. [Concomitant]
     Active Substance: LORATADINE
     Indication: PRODUCT USED FOR UNKNOWN INDICATION
     Dosage: UNK
     Route: 065
  2. SERTRALINE HYDROCHLORIDE 10MG/ML [Suspect]
     Active Substance: SERTRALINE HYDROCHLORIDE
     Indication: DEPRESSION
     Dosage: 100 MG
     Route: 048
     Dates: start: 2016, end: 2016
  3. CETIRIZINE HYDROCHLORIDE. [Suspect]
     Active Substance: CETIRIZINE HYDROCHLORIDE
     Indication: MULTIPLE ALLERGIES
     Dosage: 10 MG, UNK
     Route: 048
     Dates: start: 20160713, end: 20160722
  4. SERTRALINE HYDROCHLORIDE TEVA [Suspect]
     Active Substance: SERTRALINE HYDROCHLORIDE
     Indication: DEPRESSION
     Route: 048
     Dates: start: 20160601
  5. LORATADINE. [Concomitant]
     Active Substance: LORATADINE
     Dosage: UNK
  6. LORATADINE. [Concomitant]
     Active Substance: LORATADINE
     Dosage: UNK
  7. SERTRALINE HYDROCHLORIDE TEVA [Suspect]
     Active Substance: SERTRALINE HYDROCHLORIDE
     Indication: DEPRESSION
     Dosage: 150 MG, UNK
     Route: 048
  8. SERTRALINE HYDROCHLORIDE TEVA [Suspect]
     Active Substance: SERTRALINE HYDROCHLORIDE
     Route: 048
  9. SERTRALINE HYDROCHLORIDE TEVA [Suspect]
     Active Substance: SERTRALINE HYDROCHLORIDE
     Dosage: 100 MG, UNK
     Route: 048
     Dates: start: 20160601
  10. SERTRALINE HYDROCHLORIDE TEVA [Suspect]
     Active Substance: SERTRALINE HYDROCHLORIDE
     Route: 048
  11. PARACETAMOL [Concomitant]
     Active Substance: ACETAMINOPHEN
     Indication: HEADACHE
     Dosage: UNK

REACTIONS (5)
  - Abdominal discomfort [Recovered/Resolved]
  - Inhibitory drug interaction [Unknown]
  - Blood pressure systolic increased [Unknown]
  - Headache [Unknown]
  - Depression [Recovered/Resolved]

NARRATIVE: CASE EVENT DATE: 2016
